FAERS Safety Report 18373383 (Version 1)
Quarter: 2020Q4

REPORT INFORMATION
  Report Type: Spontaneous
  Country: US (occurrence: US)
  Receive Date: 20201012
  Receipt Date: 20201012
  Transmission Date: 20210114
  Serious: No
  Sender: FDA-Public Use
  Company Number: US-CELGENEUS-USA-20201001760

PATIENT
  Sex: Female
  Weight: 81.72 kg

DRUGS (22)
  1. THALOMID [Suspect]
     Active Substance: THALIDOMIDE
     Indication: PLASMA CELL MYELOMA
     Dosage: 200 MILLIGRAM
     Route: 048
     Dates: start: 200703
  2. NITROFURANTOIN. [Concomitant]
     Active Substance: NITROFURANTOIN
     Indication: PRODUCT USED FOR UNKNOWN INDICATION
     Route: 065
  3. THALOMID [Suspect]
     Active Substance: THALIDOMIDE
     Dosage: 100
     Route: 048
     Dates: start: 201401
  4. THALOMID [Suspect]
     Active Substance: THALIDOMIDE
     Dosage: 100
     Route: 048
     Dates: start: 201905
  5. CYMBALTA [Concomitant]
     Active Substance: DULOXETINE HYDROCHLORIDE
     Indication: PRODUCT USED FOR UNKNOWN INDICATION
     Route: 065
  6. THALOMID [Suspect]
     Active Substance: THALIDOMIDE
     Dosage: 100 MILLIGRAM
     Route: 048
     Dates: start: 200904
  7. THALOMID [Suspect]
     Active Substance: THALIDOMIDE
     Dosage: 100
     Route: 048
     Dates: start: 201612
  8. THALOMID [Suspect]
     Active Substance: THALIDOMIDE
     Dosage: 100
     Route: 048
     Dates: start: 201808
  9. THALOMID [Suspect]
     Active Substance: THALIDOMIDE
     Dosage: 100
     Route: 048
     Dates: start: 202001
  10. THALOMID [Suspect]
     Active Substance: THALIDOMIDE
     Dosage: 100
     Route: 048
     Dates: start: 201703
  11. THALOMID [Suspect]
     Active Substance: THALIDOMIDE
     Dosage: 100
     Route: 048
     Dates: start: 202010
  12. FOLIC ACID. [Concomitant]
     Active Substance: FOLIC ACID
     Indication: PRODUCT USED FOR UNKNOWN INDICATION
     Route: 065
  13. THALOMID [Suspect]
     Active Substance: THALIDOMIDE
     Dosage: 100-200MG
     Route: 048
     Dates: start: 200804
  14. THALOMID [Suspect]
     Active Substance: THALIDOMIDE
     Dosage: 100
     Route: 048
     Dates: start: 201201
  15. THALOMID [Suspect]
     Active Substance: THALIDOMIDE
     Dosage: 100
     Route: 048
     Dates: start: 201503
  16. COUMADIN [Concomitant]
     Active Substance: WARFARIN SODIUM
     Indication: PRODUCT USED FOR UNKNOWN INDICATION
     Route: 065
  17. THALOMID [Suspect]
     Active Substance: THALIDOMIDE
     Dosage: 100
     Route: 048
     Dates: start: 201606
  18. THALOMID [Suspect]
     Active Substance: THALIDOMIDE
     Dosage: 100
     Route: 048
     Dates: start: 201711
  19. THALOMID [Suspect]
     Active Substance: THALIDOMIDE
     Dosage: 100
     Route: 048
     Dates: start: 201308
  20. THALOMID [Suspect]
     Active Substance: THALIDOMIDE
     Dosage: 100
     Route: 048
     Dates: start: 202006
  21. THALOMID [Suspect]
     Active Substance: THALIDOMIDE
     Dosage: 100-200MG
     Route: 048
     Dates: start: 200708
  22. THALOMID [Suspect]
     Active Substance: THALIDOMIDE
     Dosage: 100-150MG
     Route: 048
     Dates: start: 201003

REACTIONS (1)
  - Urinary tract infection [Unknown]
